FAERS Safety Report 11262122 (Version 2)
Quarter: 2015Q4

REPORT INFORMATION
  Report Type: Spontaneous
  Country: US (occurrence: US)
  Receive Date: 20150710
  Receipt Date: 20151015
  Transmission Date: 20160304
  Serious: Yes (Disabling)
  Sender: FDA-Public Use
  Company Number: US-UCBSA-2015022006

PATIENT
  Age: 52 Year
  Sex: Male

DRUGS (1)
  1. CIMZIA [Suspect]
     Active Substance: CERTOLIZUMAB PEGOL
     Indication: RHEUMATOID ARTHRITIS
     Dosage: 200 MG (INITIATED 3-4 YEARS AGO)

REACTIONS (3)
  - Pain [Not Recovered/Not Resolved]
  - Drug ineffective [Unknown]
  - Disability [Not Recovered/Not Resolved]

NARRATIVE: CASE EVENT DATE: 201210
